FAERS Safety Report 6021556-1 (Version None)
Quarter: 2008Q4

REPORT INFORMATION
  Report Type: 
  Country: None (occurrence: None)
  Receive Date: 20081229
  Receipt Date: 20081218
  Transmission Date: 20090506
  Serious: Yes (Other)
  Sender: FDA-Public Use
  Company Number: PHHY2008AU30752

PATIENT
  Sex: Female

DRUGS (3)
  1. ACLASTA [Suspect]
     Dosage: UNK
     Route: 042
     Dates: start: 20081128
  2. GIESTA [Concomitant]
  3. NEXIUM [Concomitant]
     Dosage: 20 MG PER DAY

REACTIONS (9)
  - ANOREXIA [None]
  - ARTHRALGIA [None]
  - FATIGUE [None]
  - HEADACHE [None]
  - LETHARGY [None]
  - NAUSEA [None]
  - NECK PAIN [None]
  - PARAESTHESIA [None]
  - SWELLING FACE [None]
